FAERS Safety Report 7756235-3 (Version None)
Quarter: 2011Q3

REPORT INFORMATION
  Report Type: 
  Country: None (occurrence: None)
  Receive Date: 20110916
  Receipt Date: 20110908
  Transmission Date: 20111222
  Serious: Yes (Hospitalization)
  Sender: FDA-Public Use
  Company Number: DK-B.I. PHARMACEUTICALS,INC./RIDGEFIELD-2011-SW-00360DB

PATIENT
  Sex: Female
  Weight: 70 kg

DRUGS (8)
  1. ANAGRELIDE HYDROCHLORIDE [Suspect]
     Indication: ESSENTIAL THROMBOCYTHAEMIA
     Dosage: FORM: HARD CAPSULES. 1 MG DAILY ALTERNATING WITH 1.5 MG DAILY
     Route: 048
     Dates: start: 20050930, end: 20100507
  2. PERSANTIN [Suspect]
     Route: 048
     Dates: start: 20100507
  3. NEXIUM [Concomitant]
     Indication: PROPHYLAXIS AGAINST GASTROINTESTINAL ULCER
     Dosage: 20 MG
     Route: 048
     Dates: start: 20030710, end: 20030928
  4. NEXIUM [Concomitant]
     Dosage: 20 MG
     Route: 048
     Dates: start: 20061019, end: 20100211
  5. PERSANTIN [Suspect]
     Indication: ESSENTIAL THROMBOCYTHAEMIA
     Dosage: 200 MG
     Route: 048
     Dates: start: 20030101
  6. HYDROXYUREA [Suspect]
     Dosage: 1000 MG
     Route: 048
     Dates: start: 20100507
  7. WARFARIN SODIUM [Suspect]
     Indication: ESSENTIAL THROMBOCYTHAEMIA
     Dosage: 2.5 MG
     Route: 048
     Dates: start: 20040101
  8. HYDROXYUREA [Suspect]
     Indication: ESSENTIAL THROMBOCYTHAEMIA
     Dosage: 2000 MG
     Route: 048
     Dates: start: 20030710, end: 20030728

REACTIONS (1)
  - GASTROINTESTINAL HAEMORRHAGE [None]
